FAERS Safety Report 4376998-7 (Version None)
Quarter: 2004Q2

REPORT INFORMATION
  Report Type: 
  Country: None (occurrence: None)
  Receive Date: 20040614
  Receipt Date: 20031121
  Transmission Date: 20050107
  Serious: Yes (Hospitalization)
  Sender: FDA-Public Use
  Company Number: US-MERCK-0311USA02535

PATIENT
  Age: 48 Year
  Sex: Female
  Weight: 56 kg

DRUGS (6)
  1. EXCEDRIN (MIGRAINE) [Concomitant]
     Route: 065
  2. MIDRIN [Concomitant]
     Route: 065
  3. ASCORBIC ACID [Concomitant]
     Route: 065
     Dates: start: 20001201
  4. GRAPE SEEDS [Concomitant]
     Route: 065
     Dates: start: 20001201
  5. LINSEED OIL [Concomitant]
     Route: 065
     Dates: start: 20001201
  6. VIOXX [Suspect]
     Indication: ARTHRALGIA
     Route: 048
     Dates: start: 20011108, end: 20020113

REACTIONS (5)
  - ANXIETY [None]
  - HAEMORRHAGE [None]
  - NAUSEA [None]
  - STRESS SYMPTOMS [None]
  - VOMITING [None]
